FAERS Safety Report 19605784 (Version 3)
Quarter: 2021Q3

REPORT INFORMATION
  Report Type: Report from Study
  Country: CA (occurrence: CA)
  Receive Date: 20210723
  Receipt Date: 20210923
  Transmission Date: 20211014
  Serious: Yes (Other)
  Sender: FDA-Public Use
  Company Number: CA-TAKEDA-CA202003404

PATIENT
  Age: 14 Year
  Sex: Male

DRUGS (15)
  1. IDURSULFASE [Suspect]
     Active Substance: IDURSULFASE
     Dosage: 12 MILLIGRAM, 1/WEEK
     Route: 065
     Dates: start: 20120901
  2. IDURSULFASE [Suspect]
     Active Substance: IDURSULFASE
     Dosage: UNK
     Route: 065
     Dates: start: 20200124
  3. IDURSULFASE [Suspect]
     Active Substance: IDURSULFASE
     Dosage: 12 MILLIGRAM, 1/WEEK
     Route: 065
     Dates: start: 20200207
  4. IDURSULFASE [Suspect]
     Active Substance: IDURSULFASE
     Dosage: 12 MILLIGRAM, 1/WEEK
     Route: 065
     Dates: start: 20200410
  5. IDURSULFASE [Suspect]
     Active Substance: IDURSULFASE
     Dosage: 15.75 MILLIGRAM, 1/WEEK
     Route: 065
     Dates: start: 20120901
  6. IDURSULFASE [Suspect]
     Active Substance: IDURSULFASE
     Dosage: 12 MILLIGRAM, 1/WEEK
     Route: 065
     Dates: start: 20200130
  7. IDURSULFASE [Suspect]
     Active Substance: IDURSULFASE
     Dosage: 12 MILLIGRAM, (2 OF 6 MG VIALS), 1X/WEEK
     Route: 065
     Dates: start: 20120901
  8. IDURSULFASE [Suspect]
     Active Substance: IDURSULFASE
     Dosage: UNK, 1/WEEK
     Route: 065
     Dates: start: 20120901
  9. IDURSULFASE [Suspect]
     Active Substance: IDURSULFASE
     Dosage: UNK
     Route: 065
     Dates: start: 20200221
  10. IDURSULFASE [Suspect]
     Active Substance: IDURSULFASE
     Dosage: 12 MILLIGRAM, 1/WEEK
     Route: 065
     Dates: start: 20200130
  11. IDURSULFASE [Suspect]
     Active Substance: IDURSULFASE
     Dosage: 2 DOSAGE FORM, 1/WEEK
     Route: 065
     Dates: start: 20120901
  12. IDURSULFASE [Suspect]
     Active Substance: IDURSULFASE
     Indication: MUCOPOLYSACCHARIDOSIS II
     Dosage: 12 MILLIGRAM, 1/WEEK
     Route: 065
     Dates: start: 20120901
  13. IDURSULFASE [Suspect]
     Active Substance: IDURSULFASE
     Dosage: 12 MILLIGRAM, 1/WEEK
     Route: 065
     Dates: start: 20120901
  14. IDURSULFASE [Suspect]
     Active Substance: IDURSULFASE
     Dosage: 12 MILLIGRAM, 1/WEEK
     Route: 065
     Dates: start: 20120901
  15. IDURSULFASE [Suspect]
     Active Substance: IDURSULFASE
     Dosage: 12 MILLIGRAM,1/WEEK
     Route: 065
     Dates: start: 20120901

REACTIONS (34)
  - Lip dry [Recovered/Resolved]
  - Poor quality sleep [Not Recovered/Not Resolved]
  - Oxygen saturation decreased [Recovered/Resolved]
  - Fatigue [Recovering/Resolving]
  - Lip infection [Recovered/Resolved]
  - Lip haemorrhage [Recovering/Resolving]
  - Swelling face [Recovering/Resolving]
  - Lethargy [Recovering/Resolving]
  - Productive cough [Recovering/Resolving]
  - Body temperature increased [Recovering/Resolving]
  - Irritability [Unknown]
  - Limb mass [Not Recovered/Not Resolved]
  - Snoring [Unknown]
  - Dysphonia [Recovering/Resolving]
  - Product contamination [Recovered/Resolved]
  - Rhinorrhoea [Recovered/Resolved]
  - Hepatic enzyme increased [Not Recovered/Not Resolved]
  - Mass [Not Recovered/Not Resolved]
  - Flushing [Recovering/Resolving]
  - Cardiac valve thickening [Not Recovered/Not Resolved]
  - Heart rate increased [Unknown]
  - Discomfort [Not Recovered/Not Resolved]
  - Secretion discharge [Recovering/Resolving]
  - Swelling face [Recovering/Resolving]
  - Yellow skin [Not Recovered/Not Resolved]
  - Cough [Recovered/Resolved]
  - Nasal congestion [Recovering/Resolving]
  - Dysphagia [Recovering/Resolving]
  - Pharyngitis streptococcal [Recovered/Resolved]
  - Weight increased [Unknown]
  - Agitation [Not Recovered/Not Resolved]
  - Lip pain [Recovering/Resolving]
  - Infusion site irritation [Unknown]
  - Sleep study [Unknown]

NARRATIVE: CASE EVENT DATE: 2020
